FAERS Safety Report 8181899-2 (Version None)
Quarter: 2012Q1

REPORT INFORMATION
  Report Type: 
  Country: None (occurrence: None)
  Receive Date: 20120302
  Receipt Date: 20120111
  Transmission Date: 20120608
  Serious: Yes (Other)
  Sender: FDA-Public Use
  Company Number: US-ROCHE-784729

PATIENT
  Sex: Female
  Weight: 120 kg

DRUGS (2)
  1. ACCUTANE [Suspect]
     Indication: ACNE
     Route: 065
     Dates: start: 19930101, end: 19940101
  2. ACCUTANE [Suspect]
     Route: 065
     Dates: start: 19990101, end: 20000101

REACTIONS (6)
  - IRRITABLE BOWEL SYNDROME [None]
  - INFLAMMATORY BOWEL DISEASE [None]
  - COLITIS ULCERATIVE [None]
  - HAEMORRHOIDS [None]
  - ANXIETY [None]
  - LIVER DISORDER [None]
